FAERS Safety Report 6855956-4 (Version None)
Quarter: 2010Q3

REPORT INFORMATION
  Report Type: 
  Country: None (occurrence: None)
  Receive Date: 20100719
  Receipt Date: 20100708
  Transmission Date: 20110219
  Serious: Yes (Hospitalization)
  Sender: FDA-Public Use
  Company Number: FR-WYE-G06386410

PATIENT
  Age: 43 Year
  Sex: Female

DRUGS (10)
  1. EFFEXOR XR [Suspect]
     Indication: MAJOR DEPRESSION
     Route: 048
  2. NUCTALON [Suspect]
     Route: 048
  3. SERESTA [Suspect]
     Dates: end: 20100101
  4. VASTAREL [Concomitant]
  5. IKARAN [Concomitant]
     Indication: MIGRAINE
  6. PRAXINOR [Concomitant]
     Route: 048
  7. NOCERTONE [Concomitant]
     Indication: MIGRAINE
     Dosage: UNKNOWN
  8. ESBERIVEN [Concomitant]
  9. RIVOTRIL [Suspect]
     Route: 048
  10. KARDEGIC [Concomitant]
     Dosage: UNKNOWN

REACTIONS (2)
  - DRUG EXPOSURE DURING PREGNANCY [None]
  - PREMATURE RUPTURE OF MEMBRANES [None]
